FAERS Safety Report 16471856 (Version 4)
Quarter: 2019Q4

REPORT INFORMATION
  Report Type: Report from Study
  Country: None (occurrence: US)
  Receive Date: 20190624
  Receipt Date: 20191226
  Transmission Date: 20200122
  Serious: Yes (Hospitalization)
  Sender: FDA-Public Use
  Company Number: US-ABBVIE-19K-163-2633813-00

PATIENT
  Age: 66 Year
  Sex: Female

DRUGS (1)
  1. HUMIRA [Suspect]
     Active Substance: ADALIMUMAB
     Indication: RHEUMATOID ARTHRITIS
     Route: 058
     Dates: start: 20181218, end: 201904

REACTIONS (14)
  - Impaired self-care [Not Recovered/Not Resolved]
  - Nasopharyngitis [Recovered/Resolved]
  - Pain [Not Recovered/Not Resolved]
  - Impaired healing [Not Recovered/Not Resolved]
  - Hernia [Not Recovered/Not Resolved]
  - Pancreatitis [Unknown]
  - Loss of personal independence in daily activities [Not Recovered/Not Resolved]
  - Gait disturbance [Not Recovered/Not Resolved]
  - Joint swelling [Not Recovered/Not Resolved]
  - Device difficult to use [Unknown]
  - Arthralgia [Not Recovered/Not Resolved]
  - Discomfort [Unknown]
  - Blood electrolytes abnormal [Unknown]
  - Joint stiffness [Not Recovered/Not Resolved]

NARRATIVE: CASE EVENT DATE: 2019
